FAERS Safety Report 21399277 (Version 1)
Quarter: 2022Q4

REPORT INFORMATION
  Report Type: Other
  Country: DE (occurrence: DE)
  Receive Date: 20221001
  Receipt Date: 20221001
  Transmission Date: 20230113
  Serious: Yes (Hospitalization, Other)
  Sender: FDA-Public Use
  Company Number: DE-MACLEODS PHARMACEUTICALS US LTD-MAC2022037456

PATIENT

DRUGS (20)
  1. NEBIVOLOL [Suspect]
     Active Substance: NEBIVOLOL
     Indication: Product used for unknown indication
     Dosage: 5 MILLIGRAM, BID (1-0-1-0), TABLET (UNSPECIFIED)
     Route: 048
  2. CANDESARTAN [Suspect]
     Active Substance: CANDESARTAN
     Indication: Product used for unknown indication
     Dosage: 15 MILLIGRAM, QD (0-0-0-1), TABLET (UNSPECIFIED)
     Route: 048
  3. LERCANIDIPINE [Suspect]
     Active Substance: LERCANIDIPINE
     Indication: Product used for unknown indication
     Dosage: 10 MILLIGRAM, QD (1-0-0-0), TABLET (UNSPECIFIED)
     Route: 048
  4. INSULIN GLARGINE [Suspect]
     Active Substance: INSULIN GLARGINE
     Indication: Product used for unknown indication
     Dosage: UNK (300 IU/3ML, 0-0-0-20, PRE-FILLED SYRINGES)
     Route: 058
  5. INSULIN ASPART [Suspect]
     Active Substance: INSULIN ASPART
     Indication: Product used for unknown indication
     Dosage: UNK (300 IU/3ML, 6-6-6-0, PRE-FILLED SYRINGES)
     Route: 058
  6. CLONIDINE [Suspect]
     Active Substance: CLONIDINE
     Indication: Product used for unknown indication
     Dosage: 75 MICROGRAM, BID (1-0-1-0), TABLET (UNSPECIFIED)
     Route: 048
  7. ALLOPURINOL [Concomitant]
     Active Substance: ALLOPURINOL
     Indication: Product used for unknown indication
     Dosage: 100 MILLIGRAM, QD (1-0-0-0), TABLET (UNSPECIFIED)
     Route: 048
  8. EPLERENONE [Concomitant]
     Active Substance: EPLERENONE
     Indication: Product used for unknown indication
     Dosage: 25 MILLIGRAM, QD (1-0-0-0), TABLET (UNSPECIFIED)
     Route: 048
  9. LEVOTHYROXINE SODIUM [Concomitant]
     Active Substance: LEVOTHYROXINE SODIUM
     Indication: Product used for unknown indication
     Dosage: 88 MICROGRAM, QD (1-0-0-0), TABLET (UNSPECIFIED)
     Route: 048
  10. PANTOPRAZOLE SODIUM [Concomitant]
     Active Substance: PANTOPRAZOLE SODIUM
     Indication: Product used for unknown indication
     Dosage: 40 MILLIGRAM, QD, 1-0-0-0,
     Route: 048
  11. SODIUM BICARBONATE [Concomitant]
     Active Substance: SODIUM BICARBONATE
     Indication: Product used for unknown indication
     Dosage: 1 GRAM, TID (1-1-1-0), TABLET (UNSPECIFIED)
     Route: 048
  12. ATORVASTATIN [Concomitant]
     Active Substance: ATORVASTATIN
     Indication: Product used for unknown indication
     Dosage: 40 MILLIGRAM, QD, 0-0-1-0, TABLET (UNSPECIFIED)
     Route: 048
  13. SEVELAMER [Concomitant]
     Active Substance: SEVELAMER
     Indication: Product used for unknown indication
     Dosage: 800 MILLIGRAM, TID (2-2-2-0), TABLET (UNSPECIFIED)
     Route: 048
  14. ALFACALCIDOL [Concomitant]
     Active Substance: ALFACALCIDOL
     Indication: Product used for unknown indication
     Dosage: 0.25 MICROGRAM, QD (0-0-1-0), CAPSULES
     Route: 048
  15. TORSEMIDE [Concomitant]
     Active Substance: TORSEMIDE
     Indication: Product used for unknown indication
     Dosage: 200 MILLIGRAM, QD (1-0-0-0), TABLET (UNSPECIFIED)
     Route: 048
  16. CHOLECALCIFEROL [Concomitant]
     Active Substance: CHOLECALCIFEROL
     Indication: Product used for unknown indication
     Dosage: 20000 IU, SATURDAYS, CAPSULES
     Route: 048
  17. EPOETIN ALFA [Concomitant]
     Active Substance: ERYTHROPOIETIN
     Indication: Product used for unknown indication
     Dosage: UNK (MONDAYS, PRE-FILLED SYRINGES)
     Route: 058
  18. CALCIUM ACETATE\MAGNESIUM CARBONATE [Concomitant]
     Active Substance: CALCIUM ACETATE\MAGNESIUM CARBONATE
     Indication: Product used for unknown indication
     Dosage: UNK, QD (1-1-1-0), TABLET (UNSPECIFIED)
     Route: 048
  19. Selenase peroral [Concomitant]
     Indication: Product used for unknown indication
     Dosage: 100 MICROGRAM, QD,1-0-0-0, (AMPOULES)
     Route: 048
  20. Milgamma [Concomitant]
     Indication: Product used for unknown indication
     Dosage: UNK, QD, 1-0-0-0, TABLET (UNSPECIFIED)
     Route: 048

REACTIONS (5)
  - Fall [Unknown]
  - Pain [Unknown]
  - Syncope [Unknown]
  - Therapeutic drug monitoring analysis incorrectly performed [Unknown]
  - Therapeutic drug monitoring analysis not performed [Unknown]
